FAERS Safety Report 25952799 (Version 1)
Quarter: 2025Q4

REPORT INFORMATION
  Report Type: Spontaneous
  Country: US (occurrence: None)
  Receive Date: 20251022
  Receipt Date: 20251022
  Transmission Date: 20260119
  Serious: Yes (Other)
  Sender: FDA-CTU
  Company Number: None

PATIENT
  Age: 32 Year
  Sex: Female
  Weight: 79.2 kg

DRUGS (1)
  1. OMNITROPE [Suspect]
     Active Substance: SOMATROPIN
     Indication: Growth hormone deficiency
     Dosage: FREQUENCY : DAILY;?
     Route: 058

REACTIONS (4)
  - Product distribution issue [None]
  - Product dose omission in error [None]
  - Disease complication [None]
  - Product use issue [None]

NARRATIVE: CASE EVENT DATE: 20251017
